FAERS Safety Report 18941999 (Version 1)
Quarter: 2021Q1

REPORT INFORMATION
  Report Type: Spontaneous
  Country: US (occurrence: US)
  Receive Date: 20210225
  Receipt Date: 20210225
  Transmission Date: 20210420
  Serious: Yes (Hospitalization)
  Sender: FDA-Public Use
  Company Number: US-TEVA-2021-US-1882901

PATIENT
  Age: 75 Year
  Sex: Male

DRUGS (16)
  1. LISINOPRIL. [Concomitant]
     Active Substance: LISINOPRIL
     Indication: PRODUCT USED FOR UNKNOWN INDICATION
     Route: 065
  2. MORPHINE [Concomitant]
     Active Substance: MORPHINE
     Indication: PAIN IN JAW
     Dosage: LONG AND SHORT ACTING MORPHINE
     Route: 065
     Dates: start: 2018
  3. NIVOLUMAB [Suspect]
     Active Substance: NIVOLUMAB
     Dosage: FOR CYCLES 7 AND 8
     Route: 050
     Dates: end: 201807
  4. GEMFIBROZIL. [Concomitant]
     Active Substance: GEMFIBROZIL
     Indication: PRODUCT USED FOR UNKNOWN INDICATION
     Route: 065
  5. MONTELUKAST [Concomitant]
     Active Substance: MONTELUKAST SODIUM
     Indication: PRODUCT USED FOR UNKNOWN INDICATION
     Route: 065
  6. NIVOLUMAB [Suspect]
     Active Substance: NIVOLUMAB
     Indication: METASTATIC MALIGNANT MELANOMA
     Route: 050
     Dates: start: 201803
  7. FLUTICASONE?SALMETEROL [Concomitant]
     Indication: PRODUCT USED FOR UNKNOWN INDICATION
     Route: 065
  8. VITAMIN D3 [Concomitant]
     Active Substance: CHOLECALCIFEROL
     Indication: PRODUCT USED FOR UNKNOWN INDICATION
     Route: 065
  9. EZETIMIBE. [Concomitant]
     Active Substance: EZETIMIBE
     Indication: PRODUCT USED FOR UNKNOWN INDICATION
     Route: 065
  10. IBUPROFEN. [Concomitant]
     Active Substance: IBUPROFEN
     Indication: PAIN IN JAW
     Route: 065
     Dates: start: 2018
  11. METHYLPREDNISOLONE. [Suspect]
     Active Substance: METHYLPREDNISOLONE
     Indication: PAIN IN JAW
     Dosage: A SHORT TRIAL OF IMMUNOSUPPRESSION WITH A METHYLPREDNISOLONE DOSE?PACK
     Route: 065
     Dates: start: 2018
  12. AMOXICILLIN/CLAVULANATE [Concomitant]
     Active Substance: AMOXICILLIN\CLAVULANATE POTASSIUM
     Indication: INFECTION
     Dosage: ADMINISTERED FOR A WEEK
     Route: 065
     Dates: start: 2018, end: 2018
  13. PREDNISONE. [Suspect]
     Active Substance: PREDNISONE
     Indication: PAIN IN JAW
     Dosage: 40 MILLIGRAM DAILY; ACCIDENTLY ADMINISTERED 40MG DAILY INSTEAD OF PRESCRIBED TAPERING DOSAGE OF 40MG
     Route: 065
     Dates: start: 2018
  14. TAMSULOSIN [Concomitant]
     Active Substance: TAMSULOSIN
     Indication: PRODUCT USED FOR UNKNOWN INDICATION
     Route: 065
  15. ASPIRIN. [Concomitant]
     Active Substance: ASPIRIN
     Indication: PRODUCT USED FOR UNKNOWN INDICATION
     Route: 065
  16. MELOXICAM. [Concomitant]
     Active Substance: MELOXICAM
     Indication: PRODUCT USED FOR UNKNOWN INDICATION
     Route: 065

REACTIONS (5)
  - Malocclusion [Recovered/Resolved]
  - Osteomyelitis [Recovered/Resolved]
  - Incorrect dose administered [Unknown]
  - Jaw fracture [Recovered/Resolved]
  - Osteonecrosis of jaw [Recovered/Resolved]

NARRATIVE: CASE EVENT DATE: 2018
